FAERS Safety Report 6288689-6 (Version None)
Quarter: 2009Q3

REPORT INFORMATION
  Report Type: 
  Country: None (occurrence: None)
  Receive Date: 20090729
  Receipt Date: 20090720
  Transmission Date: 20100115
  Serious: Yes (Life-Threatening, Hospitalization)
  Sender: FDA-Public Use
  Company Number: US-JNJFOC-20090706835

PATIENT
  Sex: Male
  Weight: 37.7 kg

DRUGS (5)
  1. INFLIXIMAB [Suspect]
     Indication: CROHN'S DISEASE
     Route: 042
  2. ASPIRIN [Concomitant]
     Route: 048
  3. FERROUS SULFATE TAB [Concomitant]
  4. PROBIOTICS [Concomitant]
  5. PREDNISONE [Concomitant]

REACTIONS (3)
  - DEHYDRATION [None]
  - GASTROENTERITIS VIRAL [None]
  - SUICIDAL IDEATION [None]
